FAERS Safety Report 21161930 (Version 1)
Quarter: 2022Q3

REPORT INFORMATION
  Report Type: Spontaneous
  Country: US (occurrence: None)
  Receive Date: 20220802
  Receipt Date: 20220802
  Transmission Date: 20221027
  Serious: No
  Sender: FDA-Public Use
  Company Number: None

PATIENT
  Age: 67 Year
  Sex: Male
  Weight: 87.75 kg

DRUGS (3)
  1. DORZOLAMIDE HYDROCHLORIDE\TIMOLOL MALEATE [Suspect]
     Active Substance: DORZOLAMIDE HYDROCHLORIDE\TIMOLOL MALEATE
     Indication: Glaucoma
     Dosage: FREQUENCY : TWICE A DAY;?
     Route: 047
     Dates: start: 20220630, end: 20220723
  2. LATANOPROST [Concomitant]
     Active Substance: LATANOPROST
  3. One-A-Day for Men Multivitamins [Concomitant]

REACTIONS (4)
  - Eye pain [None]
  - Pyrexia [None]
  - Chills [None]
  - Sinus headache [None]

NARRATIVE: CASE EVENT DATE: 20220720
